FAERS Safety Report 5291249-7 (Version None)
Quarter: 2007Q2

REPORT INFORMATION
  Report Type: 
  Country: None (occurrence: None)
  Receive Date: 20070402
  Receipt Date: 20070323
  Transmission Date: 20071010
  Serious: Yes (Other)
  Sender: FDA-Public Use
  Company Number: GXKR2007GB02824

PATIENT
  Age: 57 Year
  Sex: Female
  Weight: 58.7 kg

DRUGS (3)
  1. AZITHROMYCIN [Suspect]
     Indication: BRONCHIECTASIS
     Dosage: 500 MG, ORAL
     Route: 048
     Dates: start: 20061020, end: 20070201
  2. CARBOCISTEINE (CARBOCISTEINE) [Concomitant]
  3. SERETIDE (FLUTICASONE PROPIONATE, SALMETEROL XINAFOATE) [Concomitant]

REACTIONS (4)
  - AGGRESSION [None]
  - AGITATION [None]
  - ANGER [None]
  - RADIUS FRACTURE [None]
